FAERS Safety Report 4314842-4 (Version None)
Quarter: 2004Q1

REPORT INFORMATION
  Report Type: 
  Country: None (occurrence: None)
  Receive Date: 20040308
  Receipt Date: 20040227
  Transmission Date: 20041129
  Serious: Yes (Hospitalization, Other)
  Sender: FDA-Public Use
  Company Number: FRWYE180420JUN03

PATIENT
  Age: 50 Year
  Sex: Female

DRUGS (2)
  1. RAPAMUNE [Suspect]
     Indication: PROPHYLAXIS AGAINST TRANSPLANT REJECTION
     Dosage: 5 MG 1X PER 1 DAY ORAL
     Route: 048
     Dates: start: 20020818
  2. CELLCEPT [Suspect]
     Dosage: 1.5 G 1X PER 1 DAY ORAL
     Route: 048
     Dates: start: 20020818

REACTIONS (7)
  - ARTERIOVENOUS FISTULA, ACQUIRED [None]
  - BLOOD CREATININE INCREASED [None]
  - IMPLANT SITE INFECTION [None]
  - MIGRATION OF IMPLANT [None]
  - PULMONARY EMBOLISM [None]
  - RENAL INFARCT [None]
  - STAPHYLOCOCCAL INFECTION [None]
